FAERS Safety Report 12892004 (Version 1)
Quarter: 2016Q4

REPORT INFORMATION
  Report Type: Spontaneous
  Country: US (occurrence: US)
  Receive Date: 20161028
  Receipt Date: 20161028
  Transmission Date: 20170207
  Serious: No
  Sender: FDA-Public Use
  Company Number: US-CIPLA LTD.-2016US02224

PATIENT

DRUGS (1)
  1. CICLOPIROX. [Suspect]
     Active Substance: CICLOPIROX
     Indication: SEBORRHOEA
     Dosage: UNKNOWN DOSE, 2 TIMES A WEEK; APPLIES THE SHAMPOO FOR 3 MINUTES THEN RINSES
     Route: 061
     Dates: end: 20160208

REACTIONS (2)
  - Expired product administered [Unknown]
  - Intentional product misuse [Unknown]
